FAERS Safety Report 6614191-5 (Version None)
Quarter: 2010Q1

REPORT INFORMATION
  Report Type: 
  Country: None (occurrence: None)
  Receive Date: 20100304
  Receipt Date: 20100225
  Transmission Date: 20100710
  Serious: Yes (Life-Threatening)
  Sender: FDA-Public Use
  Company Number: JP-PFIZER INC-2010026863

PATIENT
  Age: 81 Year
  Sex: Female

DRUGS (1)
  1. CELECOX [Suspect]
     Indication: PAIN
     Dosage: 200 MG, 1X/DAY
     Route: 048
     Dates: start: 20100124, end: 20100212

REACTIONS (2)
  - DECREASED APPETITE [None]
  - DIARRHOEA [None]
